FAERS Safety Report 10695829 (Version 1)
Quarter: 2015Q1

REPORT INFORMATION
  Report Type: Spontaneous
  Country: US (occurrence: None)
  Receive Date: 20150105
  Receipt Date: 20150105
  Transmission Date: 20150721
  Serious: Yes (Hospitalization)
  Sender: FDA-Public Use
  Company Number: 2014120072

PATIENT
  Age: 84 Year
  Sex: Male

DRUGS (12)
  1. PANTOZOL [Concomitant]
     Active Substance: PANTOPRAZOLE SODIUM
  2. IBUPROFEN (IBUPROFEN) [Suspect]
     Active Substance: IBUPROFEN
  3. FUROSEMIDE (FUROSEMIDE) [Suspect]
     Active Substance: FUROSEMIDE
  4. VALSARTAN (VALSARTAN) [Concomitant]
     Active Substance: VALSARTAN
  5. MELPERONE (MELPERONE) [Concomitant]
     Active Substance: MELPERONE
  6. TORASEMIDE (TORASEMIDE) [Suspect]
     Active Substance: TORSEMIDE
  7. PLASTULEN (MAGNESIUM OXIDE, FERROUS SULFATE, YEAST) [Concomitant]
  8. RISPERDAL [Suspect]
     Active Substance: RISPERIDONE
     Dates: start: 20120720, end: 20120722
  9. INSULIN ACTRAPID (INSULIN HUMAN) [Concomitant]
  10. ASPIRIN. [Concomitant]
     Active Substance: ASPIRIN
  11. CLEXANE (ENOXAPARIN SODIUM) [Concomitant]
     Active Substance: ENOXAPARIN SODIUM
  12. SIMVAGAMMA (SIMVASTATIN) [Concomitant]

REACTIONS (1)
  - Thrombocytopenia [None]

NARRATIVE: CASE EVENT DATE: 20120731
